FAERS Safety Report 5201354-9 (Version None)
Quarter: 2006Q4

REPORT INFORMATION
  Report Type: 
  Country: None (occurrence: None)
  Receive Date: 20061016
  Receipt Date: 20020517
  Transmission Date: 20070319
  Serious: Yes (Other)
  Sender: FDA-Public Use
  Company Number: PHEH2002US04678

PATIENT
  Sex: 0

DRUGS (1)
  1. MIACALCIN [Suspect]
     Dosage: INTRANASAL

REACTIONS (3)
  - EPISTAXIS [None]
  - HEADACHE [None]
  - PHLEBITIS [None]
